FAERS Safety Report 10272721 (Version 2)
Quarter: 2014Q3

REPORT INFORMATION
  Report Type: Spontaneous
  Country: DE (occurrence: DE)
  Receive Date: 20140702
  Receipt Date: 20140820
  Transmission Date: 20150326
  Serious: Yes (Hospitalization)
  Sender: FDA-Public Use
  Company Number: DE-ABBVIE-14P-062-1253736-00

PATIENT
  Age: 20 Year
  Sex: Male
  Weight: 66 kg

DRUGS (4)
  1. PREDNIHEXAL [Concomitant]
     Dosage: 10MG / 5MG
     Dates: start: 20140519
  2. HUMIRA [Suspect]
     Active Substance: ADALIMUMAB
     Indication: SPONDYLITIS
     Route: 058
     Dates: start: 20111128, end: 201404
  3. PREDNIHEXAL [Concomitant]
     Indication: PRODUCT USED FOR UNKNOWN INDICATION
     Dates: start: 20131014
  4. PANTOPRAZOLE [Concomitant]
     Active Substance: PANTOPRAZOLE SODIUM
     Indication: PRODUCT USED FOR UNKNOWN INDICATION
     Dates: start: 20140519

REACTIONS (6)
  - Gastrointestinal disorder [Recovered/Resolved]
  - Nephritis [Unknown]
  - Glomerular filtration rate increased [Not Recovered/Not Resolved]
  - Ascites [Recovered/Resolved]
  - Henoch-Schonlein purpura [Recovering/Resolving]
  - Rash [Recovered/Resolved]

NARRATIVE: CASE EVENT DATE: 20140429
